FAERS Safety Report 19694170 (Version 1)
Quarter: 2021Q3

REPORT INFORMATION
  Report Type: Spontaneous
  Country: JP (occurrence: JP)
  Receive Date: 20210813
  Receipt Date: 20210813
  Transmission Date: 20211014
  Serious: Yes (Hospitalization)
  Sender: FDA-Public Use
  Company Number: JP-NOVOPROD-828783

PATIENT
  Age: 26 Year
  Sex: Female
  Weight: 84.2 kg

DRUGS (1)
  1. LEVEMIR [Suspect]
     Active Substance: INSULIN DETEMIR
     Indication: TYPE 2 DIABETES MELLITUS
     Dosage: UNK
     Route: 058
     Dates: start: 20210617

REACTIONS (2)
  - Diabetes complicating pregnancy [Unknown]
  - Maternal exposure during pregnancy [Not Recovered/Not Resolved]
